FAERS Safety Report 25395316 (Version 1)
Quarter: 2025Q2

REPORT INFORMATION
  Report Type: Spontaneous
  Country: US (occurrence: US)
  Receive Date: 20250604
  Receipt Date: 20250604
  Transmission Date: 20250717
  Serious: Yes (Life-Threatening, Hospitalization, Other)
  Sender: ASCENT PHARMACEUTICALS INC
  Company Number: US-ASCENT-2025ASLIT00091

PATIENT
  Age: 75 Year
  Sex: Male

DRUGS (5)
  1. CARBIDOPA AND LEVODOPA [Suspect]
     Active Substance: CARBIDOPA\LEVODOPA
     Indication: Parkinson^s disease
     Dosage: 25 MG/100 MG, ONE TABLET THREE TIMES DAILY
     Route: 065
  2. CARBIDOPA AND LEVODOPA [Suspect]
     Active Substance: CARBIDOPA\LEVODOPA
     Dosage: 25 MG/100 MG
     Route: 065
  3. AMINO ACIDS [Suspect]
     Active Substance: AMINO ACIDS
     Indication: Enteral nutrition
     Route: 042
  4. AMINO ACIDS [Suspect]
     Active Substance: AMINO ACIDS
     Route: 042
  5. AMINO ACIDS [Suspect]
     Active Substance: AMINO ACIDS
     Route: 042

REACTIONS (3)
  - Parkinsonism hyperpyrexia syndrome [Recovering/Resolving]
  - Drug interaction [Unknown]
  - Product dose omission issue [Unknown]
